FAERS Safety Report 23331289 (Version 1)
Quarter: 2023Q4

REPORT INFORMATION
  Report Type: Report from Study
  Country: ZA (occurrence: ZA)
  Receive Date: 20231222
  Receipt Date: 20231222
  Transmission Date: 20240109
  Serious: Yes (Hospitalization, Other)
  Sender: FDA-Public Use
  Company Number: ZA-CELLTRION INC.-2023ZA021977

PATIENT

DRUGS (1)
  1. INFLIXIMAB [Suspect]
     Active Substance: INFLIXIMAB
     Indication: Rheumatoid arthritis
     Dosage: 200MG INTRAVENOUS INFUSION AT 0 WEEKS; 200MG AT 2 WEEKS, 200MG AT 6 WEEKS, THEN 200MG AT 8 WEEKLY IN
     Route: 042

REACTIONS (4)
  - Hip surgery [Recovering/Resolving]
  - Hypersensitivity [Unknown]
  - Overdose [Unknown]
  - Intentional dose omission [Unknown]

NARRATIVE: CASE EVENT DATE: 20231110
